FAERS Safety Report 25353276 (Version 4)
Quarter: 2025Q3

REPORT INFORMATION
  Report Type: Spontaneous
  Country: US (occurrence: US)
  Receive Date: 20250523
  Receipt Date: 20250714
  Transmission Date: 20251021
  Serious: No
  Sender: BAYER HEALTHCARE PHARMACEUTICALS INC.
  Company Number: US-BAYER-2025A068907

PATIENT
  Age: 53 Year
  Sex: Female

DRUGS (2)
  1. CLIMARA PRO [Suspect]
     Active Substance: ESTRADIOL\LEVONORGESTREL
     Route: 062
  2. CLIMARA PRO [Suspect]
     Active Substance: ESTRADIOL\LEVONORGESTREL

REACTIONS (7)
  - Malaise [None]
  - Product physical issue [None]
  - Wrong technique in product usage process [None]
  - Device adhesion issue [None]
  - Incorrect dose administered [None]
  - Device breakage [None]
  - Application site irritation [None]
